FAERS Safety Report 9229588 (Version 4)
Quarter: 2013Q4

REPORT INFORMATION
  Report Type: Spontaneous
  Country: US (occurrence: US)
  Receive Date: 20130414
  Receipt Date: 20131118
  Transmission Date: 20140711
  Serious: Yes (Hospitalization, Other)
  Sender: FDA-Public Use
  Company Number: US-B.I. PHARMACEUTICALS,INC./RIDGEFIELD-2013-BI-09713BP

PATIENT
  Age: 82 Year
  Sex: Male
  Weight: 79.83 kg

DRUGS (5)
  1. PRADAXA [Suspect]
     Indication: ATRIAL FIBRILLATION
     Dosage: 300 MG
     Route: 048
     Dates: start: 20110330, end: 20121110
  2. BISOPROLOL [Concomitant]
     Dates: start: 2001
  3. ALLOPURINOL [Concomitant]
     Dates: start: 2011
  4. SLO-NIACIN [Concomitant]
     Dates: start: 1993
  5. SULAR [Concomitant]

REACTIONS (13)
  - Pneumonia bacterial [Unknown]
  - Acute respiratory failure [Unknown]
  - Pulmonary hypertension [Unknown]
  - Cardiac failure congestive [Unknown]
  - Retroperitoneal haemorrhage [Unknown]
  - Retroperitoneal haematoma [Unknown]
  - Haemorrhagic anaemia [Unknown]
  - Acute myocardial infarction [Unknown]
  - Renal failure acute [Unknown]
  - Embolism [Unknown]
  - Haemoptysis [Recovered/Resolved]
  - Gastrointestinal haemorrhage [Unknown]
  - Iron deficiency [Unknown]
